FAERS Safety Report 14454936 (Version 2)
Quarter: 2018Q2

REPORT INFORMATION
  Report Type: Spontaneous
  Country: US (occurrence: US)
  Receive Date: 20180129
  Receipt Date: 20180611
  Transmission Date: 20180711
  Serious: Yes (Hospitalization, Other)
  Sender: FDA-Public Use
  Company Number: US-DSJP-DSU-2017-138260

PATIENT

DRUGS (3)
  1. AZOR [Suspect]
     Active Substance: AMLODIPINE BESYLATE\OLMESARTAN MEDOXOMIL
     Dosage: 5-40 MG , QD
     Route: 048
     Dates: start: 20071130, end: 20170815
  2. BENICAR [Suspect]
     Active Substance: OLMESARTAN MEDOXOMIL
     Indication: PRODUCT USED FOR UNKNOWN INDICATION
     Dosage: 40 MG, QD
  3. AZOR [Suspect]
     Active Substance: AMLODIPINE BESYLATE\OLMESARTAN MEDOXOMIL
     Indication: PRODUCT USED FOR UNKNOWN INDICATION
     Dosage: 10-40 MG, QD
     Route: 048
     Dates: start: 20071130, end: 20170815

REACTIONS (7)
  - Large intestinal ulcer [Unknown]
  - Gastroenteritis viral [Unknown]
  - Haemorrhoids [Unknown]
  - Chronic kidney disease [Unknown]
  - Sprue-like enteropathy [Recovering/Resolving]
  - Gastrooesophageal reflux disease [Unknown]
  - Colitis ischaemic [Unknown]

NARRATIVE: CASE EVENT DATE: 20081011
